FAERS Safety Report 4437502-8 (Version None)
Quarter: 2004Q3

REPORT INFORMATION
  Report Type: 
  Country: None (occurrence: None)
  Receive Date: 20040831
  Receipt Date: 20040823
  Transmission Date: 20050211
  Serious: Yes (Other)
  Sender: FDA-Public Use
  Company Number: FR-JNJFOC-20040807887

PATIENT
  Age: 30 Year
  Sex: Female

DRUGS (2)
  1. REMICADE [Suspect]
     Dosage: 4TH  INFUSION
     Route: 042
  2. NEXIUM [Concomitant]
     Indication: GASTRITIS

REACTIONS (1)
  - TRANSAMINASES INCREASED [None]
